FAERS Safety Report 14150053 (Version 1)
Quarter: 2017Q4

REPORT INFORMATION
  Report Type: Spontaneous
  Country: TR (occurrence: TR)
  Receive Date: 20171101
  Receipt Date: 20171101
  Transmission Date: 20180321
  Serious: Yes (Other)
  Sender: FDA-Public Use
  Company Number: TR-SA-2017SA210611

PATIENT
  Age: 42 Year
  Sex: Female
  Weight: 99 kg

DRUGS (5)
  1. SOLOSTAR [Suspect]
     Active Substance: DEVICE
     Indication: GESTATIONAL DIABETES
     Dates: start: 2017, end: 201710
  2. LANTUS SOLOSTAR [Suspect]
     Active Substance: INSULIN GLARGINE
     Indication: GESTATIONAL DIABETES
     Route: 058
     Dates: start: 2017, end: 201710
  3. OKSAPAR [Concomitant]
     Indication: ANTICOAGULANT THERAPY
     Route: 058
     Dates: start: 2017, end: 201710
  4. FOLBIOL [Concomitant]
     Active Substance: FOLIC ACID
     Indication: GESTATIONAL DIABETES
     Route: 048
     Dates: start: 2017, end: 201710
  5. HUMALOG [Concomitant]
     Active Substance: INSULIN LISPRO
     Indication: GESTATIONAL DIABETES
     Route: 058
     Dates: start: 2017, end: 201710

REACTIONS (2)
  - Abortion spontaneous [Unknown]
  - Exposure during pregnancy [Unknown]

NARRATIVE: CASE EVENT DATE: 20171016
